FAERS Safety Report 9109867 (Version 1)
Quarter: 2013Q1

REPORT INFORMATION
  Report Type: Spontaneous
  Country: JP (occurrence: JP)
  Receive Date: 20130222
  Receipt Date: 20130222
  Transmission Date: 20140127
  Serious: Yes (Other)
  Sender: FDA-Public Use
  Company Number: JP-JNJFOC-20130210631

PATIENT
  Age: 34 Year
  Sex: Female

DRUGS (4)
  1. INFLIXIMAB, RECOMBINANT [Suspect]
     Indication: ANORECTAL DISORDER
     Route: 042
  2. INFLIXIMAB, RECOMBINANT [Suspect]
     Indication: CROHN^S DISEASE
     Route: 042
  3. 5-AMINOSALICYLIC ACID [Concomitant]
     Indication: CROHN^S DISEASE
     Route: 065
  4. PREDNISOLONE [Concomitant]
     Indication: CROHN^S DISEASE
     Route: 065

REACTIONS (1)
  - Malignant anorectal neoplasm [Unknown]
